FAERS Safety Report 7814791-0 (Version None)
Quarter: 2011Q4

REPORT INFORMATION
  Report Type: 
  Country: None (occurrence: None)
  Receive Date: 20111014
  Receipt Date: 20111012
  Transmission Date: 20120403
  Serious: Yes (Hospitalization)
  Sender: FDA-Public Use
  Company Number: CN-ROCHE-1004428

PATIENT
  Age: 15 Year

DRUGS (1)
  1. PEGASYS [Suspect]
     Indication: HEPATITIS B

REACTIONS (3)
  - MANIA [None]
  - TREMOR [None]
  - TENSION [None]
